FAERS Safety Report 10171081 (Version 2)
Quarter: 2014Q2

REPORT INFORMATION
  Report Type: Report from Study
  Country: US (occurrence: US)
  Receive Date: 20140514
  Receipt Date: 20140515
  Transmission Date: 20141212
  Serious: Yes (Other)
  Sender: FDA-Public Use
  Company Number: US-JNJFOC-20140503732

PATIENT
  Age: 48 Year
  Sex: Female
  Weight: 90.72 kg

DRUGS (6)
  1. STELARA [Suspect]
     Indication: PSORIATIC ARTHROPATHY
     Route: 058
     Dates: start: 2013
  2. ALPRAZOLAM [Suspect]
     Indication: ANXIETY
     Route: 048
     Dates: start: 1986
  3. CYCLOBENZAPRINE [Concomitant]
     Indication: MUSCLE RELAXANT THERAPY
     Route: 048
     Dates: start: 2009
  4. TRAMADOL [Concomitant]
     Indication: PAIN
     Route: 048
     Dates: start: 2009
  5. PROZAC [Concomitant]
     Indication: DEPRESSION
     Route: 048
     Dates: start: 2009
  6. LISINOPRIL [Concomitant]
     Indication: HYPERTENSION
     Route: 048
     Dates: start: 2009

REACTIONS (4)
  - Upper limb fracture [Recovered/Resolved]
  - Fall [Recovered/Resolved]
  - Psoriatic arthropathy [Not Recovered/Not Resolved]
  - Coordination abnormal [Not Recovered/Not Resolved]
